FAERS Safety Report 10744620 (Version 1)
Quarter: 2015Q1

REPORT INFORMATION
  Report Type: Spontaneous
  Country: US (occurrence: None)
  Receive Date: 20150126
  Receipt Date: 20150126
  Transmission Date: 20150721
  Serious: Yes (Hospitalization)
  Sender: FDA-Public Use
  Company Number: 201501068

PATIENT
  Age: 70 Year
  Sex: Male
  Weight: 95.26 kg

DRUGS (3)
  1. TESTOPEL [Suspect]
     Active Substance: TESTOSTERONE
     Indication: BLOOD TESTOSTERONE DECREASED
     Dosage: PELLETS, SUBCUTANEOUS
     Route: 058
     Dates: start: 2012
  2. LISINOPRIL (LISINOPRIL) [Concomitant]
     Active Substance: LISINOPRIL
  3. XANAX [Concomitant]
     Active Substance: ALPRAZOLAM
     Indication: BLOOD TESTOSTERONE DECREASED

REACTIONS (3)
  - Sepsis [None]
  - Appendicitis perforated [None]
  - Night sweats [None]

NARRATIVE: CASE EVENT DATE: 20141209
